FAERS Safety Report 21625621 (Version 1)
Quarter: 2022Q4

REPORT INFORMATION
  Report Type: Other
  Country: US (occurrence: None)
  Receive Date: 20221122
  Receipt Date: 20221122
  Transmission Date: 20230113
  Serious: No
  Sender: FDA-Public Use
  Company Number: US-ROCHE-2953341

PATIENT
  Age: 59 Year
  Sex: Male

DRUGS (14)
  1. TRASTUZUMAB [Suspect]
     Active Substance: TRASTUZUMAB
     Indication: Colorectal cancer metastatic
     Dosage: LOADING DOSE OF 8MG/KG, FOLLOWED BY 6MG/KG
     Route: 042
     Dates: start: 201812
  2. CAPECITABINE [Suspect]
     Active Substance: CAPECITABINE
     Indication: Colorectal cancer metastatic
     Route: 065
     Dates: start: 201611, end: 201701
  3. BEVACIZUMAB [Suspect]
     Active Substance: BEVACIZUMAB
     Indication: Colorectal cancer metastatic
     Route: 065
     Dates: start: 201707, end: 201711
  4. BEVACIZUMAB [Suspect]
     Active Substance: BEVACIZUMAB
     Route: 065
     Dates: start: 201909, end: 202003
  5. TRASTUZUMAB [Suspect]
     Active Substance: TRASTUZUMAB
     Indication: Colorectal cancer metastatic
     Dosage: 3 CYCLES
     Route: 065
     Dates: start: 202004, end: 202006
  6. PERTUZUMAB [Suspect]
     Active Substance: PERTUZUMAB
     Indication: Colorectal cancer metastatic
     Dosage: 3 CYCLES
     Route: 065
     Dates: start: 202004, end: 202006
  7. LEUCOVORIN [Suspect]
     Active Substance: LEUCOVORIN
     Indication: Colorectal cancer metastatic
     Route: 065
     Dates: start: 201707, end: 201711
  8. LEUCOVORIN [Suspect]
     Active Substance: LEUCOVORIN
     Route: 065
     Dates: start: 201909, end: 202003
  9. FLUOROURACIL [Suspect]
     Active Substance: FLUOROURACIL
     Indication: Colorectal cancer metastatic
     Route: 065
     Dates: start: 201909, end: 202003
  10. OXALIPLATIN [Suspect]
     Active Substance: OXALIPLATIN
     Indication: Colorectal cancer metastatic
     Route: 065
     Dates: start: 201909, end: 202003
  11. IRINOTECAN [Suspect]
     Active Substance: IRINOTECAN
     Indication: Colorectal cancer metastatic
     Route: 065
     Dates: start: 201805
  12. PANITUMUMAB [Suspect]
     Active Substance: PANITUMUMAB
     Indication: Colorectal cancer metastatic
     Route: 065
     Dates: start: 201805
  13. LAPATINIB [Suspect]
     Active Substance: LAPATINIB
     Indication: Colorectal cancer metastatic
     Route: 048
  14. FAM-TRASTUZUMAB DERUXTECAN-NXKI [Suspect]
     Active Substance: FAM-TRASTUZUMAB DERUXTECAN-NXKI
     Indication: Colorectal cancer metastatic
     Route: 065
     Dates: start: 202006, end: 202010

REACTIONS (2)
  - Disease progression [Unknown]
  - Drug ineffective [Unknown]

NARRATIVE: CASE EVENT DATE: 20170601
